FAERS Safety Report 11525178 (Version 2)
Quarter: 2015Q4

REPORT INFORMATION
  Report Type: Spontaneous
  Country: US (occurrence: US)
  Receive Date: 20150918
  Receipt Date: 20151211
  Transmission Date: 20160304
  Serious: No
  Sender: FDA-Public Use
  Company Number: US-VERTEX PHARMACEUTICALS-2015-003809

PATIENT
  Age: 32 Year
  Sex: Female

DRUGS (1)
  1. ORKAMBI [Suspect]
     Active Substance: IVACAFTOR\LUMACAFTOR
     Indication: CYSTIC FIBROSIS
     Dosage: 400-250 MG BID
     Route: 048
     Dates: start: 20150811

REACTIONS (2)
  - Chest discomfort [Unknown]
  - Dyspnoea [Unknown]

NARRATIVE: CASE EVENT DATE: 201508
